FAERS Safety Report 5007554-5 (Version None)
Quarter: 2006Q2

REPORT INFORMATION
  Report Type: 
  Country: None (occurrence: None)
  Receive Date: 20060522
  Receipt Date: 20060511
  Transmission Date: 20061013
  Serious: Yes (Hospitalization)
  Sender: FDA-Public Use
  Company Number: BE-JNJFOC-20060502713

PATIENT
  Age: 63 Year
  Sex: Female

DRUGS (9)
  1. REMICADE [Suspect]
     Indication: RHEUMATOID ARTHRITIS
     Route: 042
  2. EFFORTIL [Concomitant]
     Route: 065
  3. FOLIC ACID [Concomitant]
     Route: 065
  4. FOSAMAX [Concomitant]
     Route: 065
  5. MEDROL [Concomitant]
     Route: 065
  6. OMEPRAZOLE [Concomitant]
     Route: 065
  7. SIPRALEXA [Concomitant]
     Route: 065
  8. DIAZEPAM [Concomitant]
     Route: 065
  9. D-VITAL CA [Concomitant]
     Dosage: 500/100/DAY
     Route: 065

REACTIONS (3)
  - ANXIETY DISORDER [None]
  - RHEUMATOID ARTHRITIS [None]
  - TOOTH ABSCESS [None]
